FAERS Safety Report 4391129-5 (Version None)
Quarter: 2004Q2

REPORT INFORMATION
  Report Type: 
  Country: None (occurrence: None)
  Receive Date: 20040621
  Receipt Date: 20040219
  Transmission Date: 20050107
  Serious: Yes (Other)
  Sender: FDA-Public Use
  Company Number: USA-2003-0009611

PATIENT
  Age: 34 Year
  Sex: Male
  Weight: 99.8 kg

DRUGS (6)
  1. OXYCONTIN [Suspect]
     Indication: PAIN
     Dosage: 40 MG, QID, ORAL
     Route: 048
  2. CELEXA [Concomitant]
  3. SEROQUEL [Concomitant]
  4. PERCOCET [Concomitant]
  5. ZOLOFT [Concomitant]
  6. EFFEXOR [Concomitant]

REACTIONS (25)
  - ABDOMINAL HERNIA [None]
  - ANXIETY [None]
  - CHEST PAIN [None]
  - CONSTIPATION [None]
  - DEPRESSION [None]
  - DIARRHOEA [None]
  - DRUG ABUSER [None]
  - DRUG DEPENDENCE [None]
  - DRUG INEFFECTIVE [None]
  - DRUG TOLERANCE INCREASED [None]
  - DRUG WITHDRAWAL SYNDROME [None]
  - ERECTILE DYSFUNCTION [None]
  - GYNAECOMASTIA [None]
  - HEADACHE [None]
  - HYPERHIDROSIS [None]
  - INADEQUATE ANALGESIA [None]
  - INSOMNIA [None]
  - IRRITABILITY [None]
  - MASTITIS [None]
  - NAUSEA [None]
  - PAIN [None]
  - PANIC ATTACK [None]
  - STRESS SYMPTOMS [None]
  - SWELLING [None]
  - VOMITING [None]
